FAERS Safety Report 14954975 (Version 1)
Quarter: 2018Q2

REPORT INFORMATION
  Report Type: Spontaneous
  Country: CH (occurrence: CH)
  Receive Date: 20180531
  Receipt Date: 20180531
  Transmission Date: 20180711
  Serious: Yes (Life-Threatening, Other)
  Sender: FDA-Public Use
  Company Number: CH-PAN-2018-000276

PATIENT
  Age: 24 Year
  Sex: Female

DRUGS (11)
  1. CASPOFUNGIN [Concomitant]
     Active Substance: CASPOFUNGIN
  2. CYCLOSPORINE. [Suspect]
     Active Substance: CYCLOSPORINE
     Indication: IMMUNOSUPPRESSION
     Dosage: C2 TARGET LEVEL 1200-1500 ?G/L
  3. MYCOPHENOLATE MOFETIL. [Suspect]
     Active Substance: MYCOPHENOLATE MOFETIL
     Indication: IMMUNOSUPPRESSION
  4. TACROLIMUS. [Suspect]
     Active Substance: TACROLIMUS
     Indication: IMMUNOSUPPRESSION
     Dosage: TARGET DOSE 12-15 MICROG/L
  5. MEROPENEM. [Concomitant]
     Active Substance: MEROPENEM
     Indication: INFECTION PROPHYLAXIS
  6. BASILIXIMAB [Suspect]
     Active Substance: BASILIXIMAB
     Indication: IMMUNOSUPPRESSION
  7. TRIMETHOPRIM/SULFAMETHAXOLE [Concomitant]
     Indication: ANTIFUNGAL PROPHYLAXIS
  8. VANCOMYCIN [Concomitant]
     Active Substance: VANCOMYCIN
  9. METHYLPREDNISONE [Suspect]
     Active Substance: METHYLPREDNISOLONE
     Indication: IMMUNOSUPPRESSION
  10. METHYLPREDNISONE [Suspect]
     Active Substance: METHYLPREDNISOLONE
     Indication: IMMUNOSUPPRESSION
  11. GANCICLOVIR. [Concomitant]
     Active Substance: GANCICLOVIR
     Indication: ANTIVIRAL PROPHYLAXIS

REACTIONS (1)
  - Drug ineffective [Unknown]
